FAERS Safety Report 6898506-9 (Version None)
Quarter: 2010Q3

REPORT INFORMATION
  Report Type: 
  Country: None (occurrence: None)
  Receive Date: 20100802
  Receipt Date: 20071026
  Transmission Date: 20110219
  Serious: Yes (Other)
  Sender: FDA-Public Use
  Company Number: US-PFIZER INC-2007080813

PATIENT
  Sex: Female
  Weight: 79.4 kg

DRUGS (4)
  1. LYRICA [Suspect]
     Indication: FIBROMYALGIA
     Dosage: BID: EVERY DAY
     Dates: start: 20070830, end: 20071017
  2. ZOLOFT [Concomitant]
  3. TRIAMTERENE AND HYDROCHLOROTHIAZID ^HARRIS^ [Concomitant]
  4. ACTONEL [Concomitant]

REACTIONS (3)
  - GRIP STRENGTH DECREASED [None]
  - HYPOAESTHESIA [None]
  - VISION BLURRED [None]
